FAERS Safety Report 19441020 (Version 5)
Quarter: 2021Q3

REPORT INFORMATION
  Report Type: Report from Study
  Country: GB (occurrence: GB)
  Receive Date: 20210621
  Receipt Date: 20210924
  Transmission Date: 20211014
  Serious: Yes (Death, Hospitalization)
  Sender: FDA-Public Use
  Company Number: GB-CELLTRION INC.-2021GB008288

PATIENT

DRUGS (21)
  1. TRASTUZUMAB. [Suspect]
     Active Substance: TRASTUZUMAB
     Indication: BREAST CANCER METASTATIC
     Dosage: 609 MG, LOADING DOSE: 8 MG/KG
     Route: 042
     Dates: start: 20150930, end: 20150930
  2. PACLITAXEL. [Suspect]
     Active Substance: PACLITAXEL
     Dosage: 120 MG, EVERY 1 WEEK
     Route: 042
     Dates: start: 20151223, end: 20151223
  3. CALCICHEW D3 [Concomitant]
     Active Substance: CALCIUM\CHOLECALCIFEROL
     Dosage: 2 DF, EVERY 1 DAY
     Route: 048
     Dates: start: 2011
  4. PREGABALIN. [Concomitant]
     Active Substance: PREGABALIN
     Dosage: 75 MILLIGRAM, EVERY 0.5 DAY
     Route: 048
     Dates: start: 201509
  5. DOCETAXEL. [Suspect]
     Active Substance: DOCETAXEL
     Indication: BREAST CANCER METASTATIC
     Dosage: 110 MG, NUMBER OF CYCLE PER REGIMEN 2
     Route: 042
     Dates: start: 20150930, end: 20151021
  6. RANITIDINE. [Concomitant]
     Active Substance: RANITIDINE
     Indication: GASTROOESOPHAGEAL REFLUX DISEASE
     Dosage: 50 MG, 1/WEEK
     Route: 058
     Dates: start: 20151111
  7. PERTUZUMAB. [Suspect]
     Active Substance: PERTUZUMAB
     Dosage: 420 MG, MAINTAINANCE DOSE
     Route: 042
     Dates: start: 20151021
  8. PERTUZUMAB. [Suspect]
     Active Substance: PERTUZUMAB
     Indication: BREAST CANCER METASTATIC
     Dosage: 840 MG, LOADING DOSE
     Route: 042
     Dates: start: 20150930, end: 20150930
  9. MORPHINE [Concomitant]
     Active Substance: MORPHINE
     Dosage: 30 MILLIGRAM, EVERY 0.5 DAY; MORPHINE MR
     Route: 048
     Dates: start: 201509
  10. OMEPRAZOLE. [Concomitant]
     Active Substance: OMEPRAZOLE
     Indication: DYSPEPSIA
     Dosage: 20 MG, EVERY DAY
     Route: 048
     Dates: start: 201509
  11. TRASTUZUMAB. [Suspect]
     Active Substance: TRASTUZUMAB
     Dosage: 441 MG, MAINTAINANCE DOSE: 6 MG/KG
     Route: 042
     Dates: start: 20151021
  12. ORAMORPH [Concomitant]
     Active Substance: MORPHINE SULFATE
     Dosage: 10 MG
     Route: 048
     Dates: start: 201509
  13. TAZOCIN [Concomitant]
     Active Substance: PIPERACILLIN SODIUM\TAZOBACTAM SODIUM
     Indication: FEBRILE NEUTROPENIA
     Dosage: UNK
     Route: 042
     Dates: start: 20151121, end: 201511
  14. LEVOFLOXACIN. [Concomitant]
     Active Substance: LEVOFLOXACIN
     Indication: FEBRILE NEUTROPENIA
     Dosage: 500 MG, EVERY 1 DAY
     Route: 048
     Dates: start: 20151125, end: 20151128
  15. PACLITAXEL. [Suspect]
     Active Substance: PACLITAXEL
     Indication: BREAST CANCER METASTATIC
     Dosage: 150 MG, EVERY 1 WEEK
     Route: 042
     Dates: start: 20151111, end: 20151222
  16. DENOSUMAB [Concomitant]
     Active Substance: DENOSUMAB
     Indication: METASTASES TO BONE
     Dosage: 120 MG EVERY 9 WEEKS
     Route: 058
     Dates: start: 20150930
  17. GENTAMICIN. [Concomitant]
     Active Substance: GENTAMICIN
     Indication: FEBRILE NEUTROPENIA
     Dosage: UNK
     Route: 042
     Dates: start: 20151121, end: 201511
  18. MIRTAZAPINE. [Concomitant]
     Active Substance: MIRTAZAPINE
     Dosage: 15 MG, EVERY DAY
     Route: 048
     Dates: start: 201510
  19. CO?AMOXICLAV [Concomitant]
     Active Substance: AMOXICILLIN\CLAVULANATE POTASSIUM
     Indication: FEBRILE NEUTROPENIA
     Dosage: 625 MILLIGRAM, EVERY 0.33 DAY
     Route: 048
     Dates: start: 20151122, end: 20151125
  20. PARACETAMOL [Concomitant]
     Active Substance: ACETAMINOPHEN
     Indication: PAIN
     Dosage: 500 MG
     Route: 048
     Dates: start: 20160127
  21. CHLORPHENAMINE [Concomitant]
     Active Substance: CHLORPHENIRAMINE MALEATE
     Dosage: 10 MG, EVERY WEEK; ANTIHISTAMINE DELIVERED WITH PACLITAXEL
     Route: 058
     Dates: start: 20151111, end: 20160127

REACTIONS (5)
  - Nausea [Recovered/Resolved]
  - Cellulitis [Recovered/Resolved]
  - Disease progression [Fatal]
  - Nasal discomfort [Recovered/Resolved]
  - Fatigue [Recovered/Resolved]

NARRATIVE: CASE EVENT DATE: 20151111
